FAERS Safety Report 7233240-7 (Version None)
Quarter: 2011Q1

REPORT INFORMATION
  Report Type: 
  Country: None (occurrence: None)
  Receive Date: 20110119
  Receipt Date: 20110111
  Transmission Date: 20110831
  Serious: Yes (Disabling)
  Sender: FDA-Public Use
  Company Number: B0602545A

PATIENT
  Sex: Female
  Weight: 64.5 kg

DRUGS (4)
  1. XELODA [Suspect]
     Route: 048
     Dates: start: 20091001
  2. LIPITOR [Concomitant]
     Route: 048
  3. TYKERB [Suspect]
     Indication: BREAST CANCER
     Route: 048
     Dates: start: 20091001
  4. PYDOXAL [Concomitant]
     Route: 048
     Dates: start: 20091001

REACTIONS (2)
  - RASH [None]
  - HEPATIC FUNCTION ABNORMAL [None]
